FAERS Safety Report 4647961-3 (Version None)
Quarter: 2005Q2

REPORT INFORMATION
  Report Type: 
  Country: None (occurrence: None)
  Receive Date: 20050428
  Receipt Date: 20050420
  Transmission Date: 20051028
  Serious: Yes (Other)
  Sender: FDA-Public Use
  Company Number: PHEH2005US04555

PATIENT

DRUGS (1)
  1. LOTREL [Suspect]
     Dates: start: 20030416

REACTIONS (6)
  - APHASIA [None]
  - CARDIAC ARREST [None]
  - CEREBROVASCULAR ACCIDENT [None]
  - COMA [None]
  - LOSS OF CONSCIOUSNESS [None]
  - RASH [None]
